FAERS Safety Report 8958458 (Version 1)
Quarter: 2012Q4

REPORT INFORMATION
  Report Type: Spontaneous
  Country: US (occurrence: None)
  Receive Date: 20121205
  Receipt Date: 20121205
  Transmission Date: 20130627
  Serious: Yes (Life-Threatening, Hospitalization)
  Sender: FDA-Public Use
  Company Number: None

PATIENT
  Age: 57 Year
  Sex: Male
  Weight: 126.4 kg

DRUGS (1)
  1. IODIXANOL [Suspect]
     Indication: COMPUTERISED TOMOGRAPHY
     Dates: start: 20120731, end: 20120731

REACTIONS (2)
  - Anaphylactic reaction [None]
  - Erythema multiforme [None]
